FAERS Safety Report 7447669-5 (Version None)
Quarter: 2011Q2

REPORT INFORMATION
  Report Type: 
  Country: None (occurrence: None)
  Receive Date: 20110429
  Receipt Date: 20110210
  Transmission Date: 20111010
  Serious: No
  Sender: FDA-Public Use
  Company Number: US-ASTRAZENECA-2011SE03117

PATIENT
  Age: 66 Year
  Sex: Female

DRUGS (3)
  1. NEXIUM [Suspect]
     Route: 048
  2. NEXIUM [Suspect]
     Route: 048
  3. NEXIUM [Suspect]
     Route: 048

REACTIONS (5)
  - INCORRECT DOSE ADMINISTERED [None]
  - OESOPHAGEAL FOOD IMPACTION [None]
  - INFLUENZA [None]
  - VOMITING [None]
  - DIARRHOEA [None]
